FAERS Safety Report 25017528 (Version 2)
Quarter: 2025Q1

REPORT INFORMATION
  Report Type: Report from Study
  Country: MX (occurrence: MX)
  Receive Date: 20250227
  Receipt Date: 20250304
  Transmission Date: 20250409
  Serious: Yes (Hospitalization, Disabling, Other)
  Sender: NOVARTIS
  Company Number: MX-002147023-NVSC2024MX039414

PATIENT
  Sex: Male
  Weight: 94 kg

DRUGS (8)
  1. TASIGNA [Suspect]
     Active Substance: NILOTINIB
     Indication: Chronic myeloid leukaemia
     Dosage: 400 MG, BID (2 OF 200 MG IN THE MORNING AND 2 AT NIGHT)
     Route: 048
  2. TASIGNA [Suspect]
     Active Substance: NILOTINIB
     Dosage: 2 DOSAGE FORM, BID
     Route: 048
     Dates: start: 2021
  3. TASIGNA [Suspect]
     Active Substance: NILOTINIB
     Dosage: 2 DOSAGE FORM (200 MG), Q12H
     Route: 048
     Dates: start: 2021
  4. GLIVEC [Suspect]
     Active Substance: IMATINIB MESYLATE
     Indication: Chronic myeloid leukaemia
     Dosage: 2 DOSAGE FORM (100 MG), Q12H
     Route: 048
     Dates: start: 2020, end: 2021
  5. INSULIN NOS [Concomitant]
     Active Substance: INSULIN NOS
     Indication: Diabetes mellitus
     Dosage: 45 IU, QD (IN THE MORNING) INJECTABLE SOLUTION
     Route: 058
     Dates: start: 2019
  6. METFORMIN [Concomitant]
     Active Substance: METFORMIN HYDROCHLORIDE
     Indication: Diabetes mellitus
     Dosage: 1 DOSAGE FORM (850MG), QD TABLET
     Route: 048
     Dates: start: 2020, end: 2023
  7. DAPAGLIFLOZIN [Concomitant]
     Active Substance: DAPAGLIFLOZIN
     Indication: Diabetes mellitus
     Dosage: 1 DOSAGE FORM (10MG), QD (TABLET)
     Route: 048
     Dates: start: 2023
  8. SYSTANE ULTRA [Concomitant]
     Active Substance: POLYETHYLENE GLYCOL 400\PROPYLENE GLYCOL
     Dosage: 1 DOSAGE FORM (1 DROP IN EACH EYE), Q4H FOR LUBRICANT
     Route: 047
     Dates: start: 2024

REACTIONS (11)
  - Respiratory failure [Recovered/Resolved]
  - Myocardial ischaemia [Recovered/Resolved]
  - Philadelphia chromosome positive [Recovered/Resolved]
  - Glaucoma [Not Recovered/Not Resolved]
  - Blindness [Not Recovered/Not Resolved]
  - Cataract [Not Recovered/Not Resolved]
  - Visual impairment [Not Recovered/Not Resolved]
  - Ocular discomfort [Not Recovered/Not Resolved]
  - Fibrosis [Not Recovered/Not Resolved]
  - Concomitant disease aggravated [Not Recovered/Not Resolved]
  - Off label use [Unknown]

NARRATIVE: CASE EVENT DATE: 20200101
